FAERS Safety Report 21386633 (Version 2)
Quarter: 2022Q4

REPORT INFORMATION
  Report Type: Spontaneous
  Country: US (occurrence: US)
  Receive Date: 20220928
  Receipt Date: 20221020
  Transmission Date: 20230112
  Serious: Yes (Other)
  Sender: FDA-Public Use
  Company Number: US-BIOVITRUM-2022US11051

PATIENT
  Sex: Male
  Weight: 10 kg

DRUGS (13)
  1. SYNAGIS [Suspect]
     Active Substance: PALIVIZUMAB
     Indication: Premature baby
  2. LACOSAMIDE [Concomitant]
     Active Substance: LACOSAMIDE
  3. TRIAMCINOLONE ACETONIDE [Concomitant]
     Active Substance: TRIAMCINOLONE ACETONIDE
  4. BUDESONIDE [Concomitant]
     Active Substance: BUDESONIDE
  5. AMOXICILLIN\CLAVULANATE POTASSIUM [Concomitant]
     Active Substance: AMOXICILLIN\CLAVULANATE POTASSIUM
  6. LEVETIRACETAM [Concomitant]
     Active Substance: LEVETIRACETAM
  7. FAMOTIDINE [Concomitant]
     Active Substance: FAMOTIDINE
  8. ALBUTEROL SULFATE [Concomitant]
     Active Substance: ALBUTEROL SULFATE
  9. CLOBAZAM [Concomitant]
     Active Substance: CLOBAZAM
  10. SODIUM CHLORIDE [Concomitant]
     Active Substance: SODIUM CHLORIDE
  11. EPIDIOLEX [Concomitant]
     Active Substance: CANNABIDIOL
  12. PHENOBARBITAL [Concomitant]
     Active Substance: PHENOBARBITAL
  13. CLONAZEPAM [Concomitant]
     Active Substance: CLONAZEPAM

REACTIONS (5)
  - Pneumonia [Not Recovered/Not Resolved]
  - Seizure [Not Recovered/Not Resolved]
  - Respiratory syncytial virus infection [Not Recovered/Not Resolved]
  - Illness [Unknown]
  - Product dose omission issue [Unknown]
